FAERS Safety Report 23336398 (Version 1)
Quarter: 2023Q4

REPORT INFORMATION
  Report Type: Spontaneous
  Country: US (occurrence: US)
  Receive Date: 20231225
  Receipt Date: 20231225
  Transmission Date: 20240109
  Serious: Yes (Other)
  Sender: FDA-Public Use
  Company Number: US-UCBSA-2023060235

PATIENT
  Sex: Female
  Weight: 75.737 kg

DRUGS (1)
  1. CIMZIA [Suspect]
     Active Substance: CERTOLIZUMAB PEGOL
     Indication: Rheumatoid arthritis
     Dosage: 200 MILLIGRAM, EV 2 WEEKS(QOW)
     Route: 058
     Dates: start: 202309

REACTIONS (3)
  - Ankle operation [Unknown]
  - Hypersensitivity [Unknown]
  - Asthma [Unknown]

NARRATIVE: CASE EVENT DATE: 20230101
